FAERS Safety Report 16919418 (Version 1)
Quarter: 2019Q4

REPORT INFORMATION
  Report Type: Spontaneous
  Country: US (occurrence: US)
  Receive Date: 20191014
  Receipt Date: 20191014
  Transmission Date: 20200122
  Serious: Yes (Other)
  Sender: FDA-Public Use
  Company Number: None

PATIENT
  Age: 74 Year
  Sex: Female
  Weight: 73.35 kg

DRUGS (3)
  1. VESICARE [Concomitant]
     Active Substance: SOLIFENACIN SUCCINATE
  2. OXYGEN. [Concomitant]
     Active Substance: OXYGEN
  3. EMGALITY [Suspect]
     Active Substance: GALCANEZUMAB-GNLM
     Indication: MIGRAINE PROPHYLAXIS
     Dosage: ?          QUANTITY:1 INJECTION(S);OTHER FREQUENCY:EVERY 30 DAYS;?
     Route: 030
     Dates: start: 20190802, end: 20190913

REACTIONS (9)
  - Abdominal distension [None]
  - Abdominal pain upper [None]
  - Hyperhidrosis [None]
  - Diarrhoea [None]
  - Vomiting [None]
  - Constipation [None]
  - Faeces hard [None]
  - Rectal haemorrhage [None]
  - Intestinal obstruction [None]

NARRATIVE: CASE EVENT DATE: 20191013
